FAERS Safety Report 20143647 (Version 1)
Quarter: 2021Q4

REPORT INFORMATION
  Report Type: Spontaneous
  Country: IE (occurrence: IE)
  Receive Date: 20211203
  Receipt Date: 20211203
  Transmission Date: 20220303
  Serious: Yes (Other)
  Sender: FDA-Public Use
  Company Number: None

PATIENT
  Age: 57 Year
  Sex: Male

DRUGS (2)
  1. PULMOZYME [Suspect]
     Active Substance: DORNASE ALFA
     Indication: Product used for unknown indication
     Dosage: FIRST DOSE ADMINISTERED BY UPPER GI REGISTRAR ON 26/05/2021, SECOND DOSE WAS ADMINISTERED BY INTERN
     Route: 065
     Dates: start: 20210526
  2. ALTEPLASE [Suspect]
     Active Substance: ALTEPLASE
     Indication: Product used for unknown indication
     Dosage: FIRST DOSE ADMINISTERED BY UPPER GI REGISTRAR ON 26/05/2021, SECOND DOSE WAS ADMINISTERED BY INTERN
     Route: 050
     Dates: start: 20210526

REACTIONS (1)
  - Haemoptysis [Unknown]

NARRATIVE: CASE EVENT DATE: 20210528
